FAERS Safety Report 4554879-3 (Version None)
Quarter: 2004Q4

REPORT INFORMATION
  Report Type: 
  Country: None (occurrence: None)
  Receive Date: 20041222
  Receipt Date: 20040922
  Transmission Date: 20050328
  Serious: Yes (Death)
  Sender: FDA-Public Use
  Company Number: 208913

PATIENT
  Age: 76 Year
  Sex: Male
  Weight: 60.3 kg

DRUGS (12)
  1. AVASTIN [Suspect]
     Indication: COLON CANCER METASTATIC
     Dosage: 340 MG, Q2W, INTRAVENOUS
     Route: 042
     Dates: start: 20040630, end: 20040630
  2. FLUOROURACIL [Concomitant]
  3. CALCIUM LEUCOVORIN (LEUCOVORIN CALCIUM) [Concomitant]
  4. MYCOSTATIN [Concomitant]
  5. IMDUR (ISOSORBIDE MONONITRATE) PWDR + SOLVENT, INFUSION, SOLN [Concomitant]
  6. ALTACE [Concomitant]
  7. ALBUTEROL (ALBUTEROL SULFATE, ALBUTEROL) [Concomitant]
  8. ATROVENT [Concomitant]
  9. PROTONIX [Concomitant]
  10. ZOCOR [Concomitant]
  11. COUMADIN [Concomitant]
  12. LOPRESSOR [Concomitant]

REACTIONS (1)
  - MYOCARDIAL INFARCTION [None]
